FAERS Safety Report 8630564 (Version 3)
Quarter: 2012Q4

REPORT INFORMATION
  Report Type: 
  Country: US (occurrence: US)
  Receive Date: 20120622
  Receipt Date: 20121212
  Transmission Date: 20130627
  Serious: Yes (Other)
  Sender: FDA-Public Use
  Company Number: US-ROCHE-736097

PATIENT
  Age: 16 Year
  Sex: Male
  Weight: 79.45 kg

DRUGS (2)
  1. ACCUTANE [Suspect]
     Indication: ACNE
     Route: 065
     Dates: start: 199811, end: 199905
  2. ACCUTANE [Suspect]
     Dosage: 05/Apr/2001 received isotretinoin therapy
     Route: 065

REACTIONS (10)
  - Crohn^s disease [Unknown]
  - Depression [Unknown]
  - Stress [Unknown]
  - Anal fistula [Unknown]
  - Dry skin [Unknown]
  - Lip dry [Unknown]
  - Irritable bowel syndrome [Unknown]
  - Rash [Unknown]
  - Arthropathy [Unknown]
  - Dry eye [Unknown]
